FAERS Safety Report 6188403-9 (Version None)
Quarter: 2009Q2

REPORT INFORMATION
  Report Type: 
  Country: None (occurrence: None)
  Receive Date: 20090513
  Receipt Date: 20090505
  Transmission Date: 20091009
  Serious: Yes (Other)
  Sender: FDA-Public Use
  Company Number: US-ASTRAZENECA-2009UW11417

PATIENT
  Sex: Male

DRUGS (1)
  1. SEROQUEL [Suspect]
     Route: 048
     Dates: start: 20040101

REACTIONS (13)
  - AMNESIA [None]
  - BLINDNESS [None]
  - CAROTID ARTERIOSCLEROSIS [None]
  - CEREBRAL INFARCTION [None]
  - CEREBROVASCULAR ACCIDENT [None]
  - DEAFNESS [None]
  - DIABETES MELLITUS [None]
  - DIABETIC FOOT INFECTION [None]
  - DIABETIC GASTROPATHY [None]
  - DIABETIC NEUROPATHY [None]
  - HAEMORRHAGIC INFARCTION [None]
  - TRIGGER FINGER [None]
  - WEIGHT INCREASED [None]
